FAERS Safety Report 8049628-0 (Version None)
Quarter: 2012Q1

REPORT INFORMATION
  Report Type: 
  Country: None (occurrence: None)
  Receive Date: 20120117
  Receipt Date: 20120104
  Transmission Date: 20120608
  Serious: Yes (Other)
  Sender: FDA-Public Use
  Company Number: DK-ROCHE-1002514

PATIENT
  Sex: Female

DRUGS (3)
  1. METHOTREXATE [Suspect]
     Indication: RHEUMATOID ARTHRITIS
     Route: 058
     Dates: start: 20090720, end: 20110503
  2. REMICADE [Suspect]
     Indication: RHEUMATOID ARTHRITIS
     Dosage: STARTDOSIS: 350 MG UGE 0,2,6, +8
     Dates: start: 20100115, end: 20110110
  3. MABTHERA [Suspect]
     Indication: RHEUMATOID ARTHRITIS
     Dosage: 1000MG X2 WITH INTERVALS OF 2 WEEKS
     Dates: start: 20110411, end: 20110506

REACTIONS (2)
  - OROPHARYNGEAL CANCER STAGE UNSPECIFIED [None]
  - METASTASES TO LYMPH NODES [None]
